FAERS Safety Report 6938962-0 (Version None)
Quarter: 2010Q3

REPORT INFORMATION
  Report Type: 
  Country: None (occurrence: None)
  Receive Date: 20100824
  Receipt Date: 20100814
  Transmission Date: 20110219
  Serious: Yes (Hospitalization)
  Sender: FDA-Public Use
  Company Number: GXKR2010GB09119

PATIENT
  Age: 62 Year
  Sex: Male

DRUGS (4)
  1. ACETYLSALICYLIC ACID SRT [Suspect]
     Route: 065
  2. ATORVASTATIN (NGX) [Suspect]
     Route: 065
  3. ISOSORBIDE MONONITRATE [Suspect]
     Route: 065
  4. ADIZEM - SLOW RELEASE [Suspect]
     Dosage: 2.5 G, (TOTAL)
     Route: 065

REACTIONS (9)
  - ACIDOSIS [None]
  - DIALYSIS [None]
  - GAIT DISTURBANCE [None]
  - HYPERKALAEMIA [None]
  - HYPOTENSION [None]
  - INTENTIONAL OVERDOSE [None]
  - RENAL FAILURE ACUTE [None]
  - VISION BLURRED [None]
  - VOMITING [None]
